FAERS Safety Report 4555216-0 (Version None)
Quarter: 2005Q1

REPORT INFORMATION
  Report Type: 
  Country: None (occurrence: None)
  Receive Date: 20050118
  Receipt Date: 20050112
  Transmission Date: 20050727
  Serious: Yes (Disabling, Other)
  Sender: FDA-Public Use
  Company Number: US-MERCK-0501USA01220

PATIENT
  Sex: Female

DRUGS (1)
  1. VIOXX [Suspect]
     Route: 048
     Dates: start: 20030101

REACTIONS (4)
  - ADVERSE EVENT [None]
  - EMOTIONAL DISTRESS [None]
  - PAIN [None]
  - THROMBOSIS [None]
